FAERS Safety Report 7297520-1 (Version None)
Quarter: 2011Q1

REPORT INFORMATION
  Report Type: 
  Country: None (occurrence: None)
  Receive Date: 20110216
  Receipt Date: 20110211
  Transmission Date: 20110831
  Serious: Yes (Hospitalization)
  Sender: FDA-Public Use
  Company Number: JP-PFIZER INC-2011022956

PATIENT
  Age: 81 Year
  Sex: Male

DRUGS (3)
  1. ESTRAMUSTINE SODIUM PHOSPHATE [Suspect]
     Indication: PROSTATE CANCER
     Dosage: 560 MG /DAY
     Route: 048
     Dates: start: 20070101
  2. DOCETAXEL [Suspect]
     Indication: PROSTATE CANCER
     Dosage: 25 MG/M2, UNK
     Route: 042
     Dates: start: 20070101
  3. DEXAMETHASONE [Suspect]
     Indication: PROSTATE CANCER
     Dosage: 1 MG
     Route: 048
     Dates: start: 20070101

REACTIONS (4)
  - NICOTINIC ACID DEFICIENCY [None]
  - NAUSEA [None]
  - WEIGHT DECREASED [None]
  - DECREASED APPETITE [None]
